FAERS Safety Report 9353369 (Version 1)
Quarter: 2013Q2

REPORT INFORMATION
  Report Type: Report from Study
  Country: CA (occurrence: CA)
  Receive Date: 20130618
  Receipt Date: 20130618
  Transmission Date: 20140414
  Serious: Yes (Hospitalization)
  Sender: FDA-Public Use
  Company Number: CA-JNJFOC-20130607868

PATIENT
  Sex: Female

DRUGS (10)
  1. REMICADE [Suspect]
     Indication: CROHN^S DISEASE
     Route: 042
     Dates: start: 20130412
  2. REMICADE [Suspect]
     Indication: CROHN^S DISEASE
     Route: 042
     Dates: start: 20121204
  3. CYMBALTA [Concomitant]
     Route: 065
  4. IMURAN [Concomitant]
     Route: 065
  5. BUSCOPAN [Concomitant]
     Route: 065
  6. MOTILIUM [Concomitant]
     Route: 065
  7. VITAMIN B12 [Concomitant]
     Route: 065
  8. TRAMADOL [Concomitant]
     Route: 065
  9. TYLENOL [Concomitant]
     Route: 065
  10. ALESSE [Concomitant]
     Route: 065

REACTIONS (2)
  - Systemic lupus erythematosus [Unknown]
  - Adverse drug reaction [Unknown]
